FAERS Safety Report 13126169 (Version 1)
Quarter: 2017Q1

REPORT INFORMATION
  Report Type: Spontaneous
  Country: JP (occurrence: JP)
  Receive Date: 20170118
  Receipt Date: 20170118
  Transmission Date: 20170428
  Serious: Yes (Other)
  Sender: FDA-Public Use
  Company Number: JP-JNJFOC-20170110457

PATIENT

DRUGS (1)
  1. INFLIXIMAB, RECOMBINANT [Suspect]
     Active Substance: INFLIXIMAB
     Indication: CROHN^S DISEASE
     Route: 042

REACTIONS (15)
  - Herpes virus infection [Unknown]
  - Skin infection [Unknown]
  - Hepatic function abnormal [Unknown]
  - Infusion related reaction [Unknown]
  - Seizure [Unknown]
  - Appendicitis [Unknown]
  - Rash [Unknown]
  - Pustular psoriasis [Unknown]
  - Neutropenia [Unknown]
  - Histiocytosis haematophagic [Unknown]
  - Anaphylactic reaction [Unknown]
  - Vomiting [Unknown]
  - Pyrexia [Unknown]
  - Nausea [Unknown]
  - SAPHO syndrome [Unknown]
